FAERS Safety Report 9580815 (Version 2)
Quarter: 2013Q4

REPORT INFORMATION
  Report Type: Spontaneous
  Country: BR (occurrence: BR)
  Receive Date: 20131002
  Receipt Date: 20131028
  Transmission Date: 20140711
  Serious: Yes (Other)
  Sender: FDA-Public Use
  Company Number: BR-PFIZER INC-2013277896

PATIENT
  Age: 66 Year
  Sex: Male

DRUGS (6)
  1. XALATAN [Suspect]
     Indication: GLAUCOMA
     Dosage: 1 DROP IN EACH EYE, 1X/DAY
     Route: 047
     Dates: start: 2012, end: 201309
  2. COSOPT [Suspect]
     Indication: GLAUCOMA
     Dosage: UNK, TWICE A DAY
     Dates: start: 2012, end: 20130925
  3. LOSARTAN [Concomitant]
     Indication: BLOOD PRESSURE ABNORMAL
     Dosage: UNK
  4. AMLODIPINE [Concomitant]
     Indication: BLOOD PRESSURE INCREASED
     Dosage: UNK
  5. ATORVASTATIN [Concomitant]
     Indication: BLOOD CHOLESTEROL INCREASED
     Dosage: UNK
  6. COMBODART [Concomitant]
     Indication: PROSTATIC ADENOMA
     Dosage: UNK
     Dates: start: 2012

REACTIONS (4)
  - Cataract [Recovered/Resolved]
  - Corneal lesion [Unknown]
  - Eye irritation [Recovering/Resolving]
  - Ocular hyperaemia [Recovering/Resolving]
